FAERS Safety Report 5867243-1 (Version None)
Quarter: 2008Q3

REPORT INFORMATION
  Report Type: 
  Country: None (occurrence: None)
  Receive Date: 20080902
  Receipt Date: 20080825
  Transmission Date: 20090109
  Serious: Yes (Hospitalization, Other)
  Sender: FDA-Public Use
  Company Number: US-MERCK-0702USA04761

PATIENT
  Age: 78 Year
  Sex: Female

DRUGS (2)
  1. FOSAMAX [Suspect]
     Indication: OSTEOPOROSIS
     Route: 065
     Dates: start: 19981228, end: 20041201
  2. HORMONES (UNSPECIFIED) [Concomitant]
     Route: 065
     Dates: start: 19590101, end: 19980101

REACTIONS (25)
  - ANXIETY [None]
  - ARTHRALGIA [None]
  - ARTHROPATHY [None]
  - CARDIAC DISORDER [None]
  - CARDIAC FAILURE CONGESTIVE [None]
  - DENTAL CARIES [None]
  - DEPRESSION [None]
  - EATING DISORDER [None]
  - EDENTULOUS [None]
  - FEAR [None]
  - GINGIVAL BLEEDING [None]
  - GINGIVAL DISORDER [None]
  - HYPERTENSION [None]
  - IMPAIRED HEALING [None]
  - INSOMNIA [None]
  - OEDEMA MOUTH [None]
  - ORAL DISORDER [None]
  - ORAL INFECTION [None]
  - ORAL PAIN [None]
  - OSTEONECROSIS [None]
  - PERIODONTAL DISEASE [None]
  - PNEUMONIA [None]
  - PRIMARY SEQUESTRUM [None]
  - TONGUE ULCERATION [None]
  - TOOTH FRACTURE [None]
